FAERS Safety Report 21877464 (Version 15)
Quarter: 2025Q1

REPORT INFORMATION
  Report Type: Report from Study
  Country: CA (occurrence: CA)
  Receive Date: 20230118
  Receipt Date: 20250112
  Transmission Date: 20250409
  Serious: Yes (Hospitalization, Other)
  Sender: JOHNSON AND JOHNSON
  Company Number: CA-JNJFOC-20221245050

PATIENT
  Age: 8 Decade
  Sex: Female

DRUGS (9)
  1. REMICADE [Suspect]
     Active Substance: INFLIXIMAB
     Indication: Crohn^s disease
     Dosage: PATIENT RECEIVED INFUSION ON 11-JAN-2023
     Route: 041
     Dates: start: 20190627
  2. REMICADE [Suspect]
     Active Substance: INFLIXIMAB
     Route: 041
  3. REMICADE [Suspect]
     Active Substance: INFLIXIMAB
     Route: 041
     Dates: start: 20190627
  4. REMICADE [Suspect]
     Active Substance: INFLIXIMAB
     Route: 041
     Dates: start: 20240318
  5. REMICADE [Suspect]
     Active Substance: INFLIXIMAB
     Dosage: ON 15-MAY-2024, THE PATIENT HAD RECEIVED 36TH INFLIXIMAB INFUSION AT DOSE OF 10 MG/KG?EXPIRY: /OCT/2
     Route: 041
     Dates: start: 20190627
  6. PREDNISONE [Concomitant]
     Active Substance: PREDNISONE
  7. METAMUCIL THERAPY FOR REGULARITY [Concomitant]
     Active Substance: PSYLLIUM HUSK
  8. LOPERAMIDE [Concomitant]
     Active Substance: LOPERAMIDE
  9. IMODIUM [Concomitant]
     Active Substance: LOPERAMIDE HYDROCHLORIDE

REACTIONS (19)
  - Pulmonary thrombosis [Unknown]
  - Chronic obstructive pulmonary disease [Not Recovered/Not Resolved]
  - Pneumonia [Recovered/Resolved]
  - Dehydration [Recovered/Resolved]
  - Pericardial effusion [Unknown]
  - Diarrhoea [Not Recovered/Not Resolved]
  - Blood pressure increased [Not Recovered/Not Resolved]
  - Pneumonia [Recovering/Resolving]
  - Atrial fibrillation [Unknown]
  - Pleural effusion [Unknown]
  - Myocardial infarction [Unknown]
  - Crohn^s disease [Not Recovered/Not Resolved]
  - Cardiac failure [Unknown]
  - Influenza [Recovered/Resolved]
  - Nasopharyngitis [Unknown]
  - Product dose omission issue [Unknown]
  - Anal incontinence [Unknown]
  - Mobility decreased [Unknown]
  - Drug ineffective [Unknown]

NARRATIVE: CASE EVENT DATE: 20200101
